FAERS Safety Report 6575203-0 (Version None)
Quarter: 2010Q1

REPORT INFORMATION
  Report Type: 
  Country: None (occurrence: None)
  Receive Date: 20100209
  Receipt Date: 20100201
  Transmission Date: 20100710
  Serious: Yes (Death, Other)
  Sender: FDA-Public Use
  Company Number: US-BAYER-200919435GPV

PATIENT
  Age: 72 Year
  Sex: Female

DRUGS (2)
  1. MAGNEVIST [Suspect]
     Indication: NUCLEAR MAGNETIC RESONANCE IMAGING
     Dosage: 35 ML IN 2 DOSES OVER 14 MONTHS
     Route: 042
  2. EPO [Concomitant]

REACTIONS (5)
  - ATRIOVENTRICULAR BLOCK COMPLETE [None]
  - HYPOTHYROIDISM [None]
  - NEPHROCALCINOSIS [None]
  - NEPHROGENIC SYSTEMIC FIBROSIS [None]
  - SUBCLAVIAN VEIN THROMBOSIS [None]
